FAERS Safety Report 8085395-2 (Version None)
Quarter: 2012Q1

REPORT INFORMATION
  Report Type: 
  Country: None (occurrence: None)
  Receive Date: 20120128
  Receipt Date: 20110403
  Transmission Date: 20120608
  Serious: No
  Sender: FDA-Public Use
  Company Number: US-ABBOTT-10P-163-0683812-00

PATIENT
  Sex: Female

DRUGS (3)
  1. HUMIRA [Suspect]
     Indication: PRODUCT USED FOR UNKNOWN INDICATION
  2. HUMIRA [Suspect]
     Indication: PSORIATIC ARTHROPATHY
  3. HUMIRA [Suspect]
     Indication: PSORIASIS

REACTIONS (11)
  - DYSPNOEA [None]
  - ACNE [None]
  - DEVICE MALFUNCTION [None]
  - RASH PAPULAR [None]
  - SKIN LESION [None]
  - SUBCUTANEOUS NODULE [None]
  - ADVERSE DRUG REACTION [None]
  - QUALITY OF LIFE DECREASED [None]
  - ALOPECIA [None]
  - INCORRECT DOSE ADMINISTERED BY DEVICE [None]
  - WOUND [None]
